FAERS Safety Report 10223795 (Version 3)
Quarter: 2014Q3

REPORT INFORMATION
  Report Type: Spontaneous
  Country: US (occurrence: US)
  Receive Date: 20140609
  Receipt Date: 20140709
  Transmission Date: 20150326
  Serious: No
  Sender: FDA-Public Use
  Company Number: US-009507513-1406USA003976

PATIENT
  Age: 19 Year
  Sex: Female
  Weight: 48.53 kg

DRUGS (1)
  1. NEXPLANON [Suspect]
     Active Substance: ETONOGESTREL
     Indication: CONTRACEPTION
     Dosage: DOSE/FREQUENCY: STANDARD
     Route: 059
     Dates: start: 20140306

REACTIONS (1)
  - Implant site vesicles [Recovered/Resolved]

NARRATIVE: CASE EVENT DATE: 20140313
